FAERS Safety Report 20351860 (Version 1)
Quarter: 2022Q1

REPORT INFORMATION
  Report Type: Spontaneous
  Country: US (occurrence: None)
  Receive Date: 20220118
  Receipt Date: 20220118
  Transmission Date: 20220423
  Serious: Yes (Life-Threatening)
  Sender: FDA-Public Use
  Company Number: None

PATIENT
  Age: 72 Year
  Sex: Male

DRUGS (4)
  1. ERLEADA [Suspect]
     Active Substance: APALUTAMIDE
     Indication: Prostate cancer
     Dosage: FREQUENCY : DAILY;?
     Route: 048
     Dates: start: 20200924, end: 20220107
  2. JARDIANCE [Concomitant]
     Active Substance: EMPAGLIFLOZIN
  3. TRULICITY [Concomitant]
     Active Substance: DULAGLUTIDE
  4. TYLENOL [Concomitant]
     Active Substance: ACETAMINOPHEN

REACTIONS (2)
  - Myocardial infarction [None]
  - Type 2 diabetes mellitus [None]

NARRATIVE: CASE EVENT DATE: 20220107
